FAERS Safety Report 6328898-0 (Version None)
Quarter: 2009Q3

REPORT INFORMATION
  Report Type: 
  Country: None (occurrence: None)
  Receive Date: 20090818
  Receipt Date: 20090713
  Transmission Date: 20100115
  Serious: No
  Sender: FDA-Public Use
  Company Number: WAES 0907USA01731

PATIENT
  Sex: Female

DRUGS (1)
  1. JANUVIA [Suspect]
     Dosage: PO
     Route: 048
     Dates: start: 20090113, end: 20090713

REACTIONS (3)
  - HYPERAESTHESIA [None]
  - LIP SWELLING [None]
  - PHARYNGEAL OEDEMA [None]
